FAERS Safety Report 12079721 (Version 1)
Quarter: 2016Q1

REPORT INFORMATION
  Report Type: Spontaneous
  Country: US (occurrence: None)
  Receive Date: 20160212
  Receipt Date: 20160212
  Transmission Date: 20160526
  Serious: Yes (Other)
  Sender: FDA-Public Use
  Company Number: None

PATIENT
  Age: 74 Year
  Sex: Female

DRUGS (1)
  1. STIVARGA [Suspect]
     Active Substance: REGORAFENIB
     Indication: COLON CANCER
     Dosage: 40 MG , 4 TABS DAILY, 21 DAY ON , 7 DAYS
     Route: 048
     Dates: start: 20151224

REACTIONS (2)
  - Pain in extremity [None]
  - Chest pain [None]

NARRATIVE: CASE EVENT DATE: 20151231
